FAERS Safety Report 9128568 (Version 3)
Quarter: 2013Q2

REPORT INFORMATION
  Report Type: Report from Study
  Country: SE (occurrence: SE)
  Receive Date: 20130228
  Receipt Date: 20130617
  Transmission Date: 20140414
  Serious: Yes (Hospitalization)
  Sender: FDA-Public Use
  Company Number: SE-ROCHE-1195969

PATIENT
  Age: 65 Year
  Sex: Female
  Weight: 63 kg

DRUGS (13)
  1. TOCILIZUMAB [Suspect]
     Indication: RHEUMATOID ARTHRITIS
     Dosage: AS PRESCRIBED ONE EVERY MONTH LAST DOSE 7/2 PRIOR TO SAE.
     Route: 065
  2. TOCILIZUMAB [Suspect]
     Route: 042
     Dates: start: 20130207
  3. FLUNITRAZEPAM [Concomitant]
     Dosage: 1 TABLET MYLAN
     Route: 065
  4. DICLOFENAC [Concomitant]
     Dosage: 1 SUPPOPSITORY MYLAN
     Route: 065
  5. KALCIPOS-D [Concomitant]
     Dosage: 1 TABLET
     Route: 065
  6. AMLODIPINE [Concomitant]
     Dosage: 1 TABLET
     Route: 065
  7. PREDNISOLONE [Concomitant]
     Dosage: 2 TABLETS AT 08 PFIZER
     Route: 065
  8. ALENDRONATE [Concomitant]
     Indication: OSTEOPOROSIS
     Dosage: 1 TABLET AT 08 MYLAN
     Route: 065
  9. DOLCONTIN [Concomitant]
     Dosage: 3 RELEASE TABLETS AT 08 AND 2 RELEASE TABLETS AT 20
     Route: 065
  10. PANODIL [Concomitant]
     Dosage: 2 FILM COATED TABLETS AT 06, AT 12, AT 17, AT 22 GLAXOSMITHKLINE
     Route: 065
  11. OXASCAND [Concomitant]
     Indication: MUSCLE SPASMS
     Dosage: 1-2 TABLET AT 16
     Route: 065
  12. KLEXANE [Concomitant]
     Indication: PROPHYLAXIS
     Route: 058
     Dates: start: 20130308, end: 20130316
  13. OXASCAND [Concomitant]

REACTIONS (2)
  - Acetabulum fracture [Recovered/Resolved]
  - Ulna fracture [Unknown]
